FAERS Safety Report 10034522 (Version 1)
Quarter: 2014Q1

REPORT INFORMATION
  Report Type: Spontaneous
  Country: US (occurrence: None)
  Receive Date: 20140324
  Receipt Date: 20140324
  Transmission Date: 20141002
  Serious: Yes (Other)
  Sender: FDA-Public Use
  Company Number: None

PATIENT
  Age: 65 Year
  Sex: Female
  Weight: 86.18 kg

DRUGS (1)
  1. CLONAZEPAM [Suspect]
     Indication: ANXIETY
     Dosage: 1  TID  ORAL
     Route: 048
     Dates: start: 20140222, end: 20140322

REACTIONS (3)
  - Headache [None]
  - Chest pain [None]
  - Product quality issue [None]
